FAERS Safety Report 8417021-4 (Version None)
Quarter: 2012Q2

REPORT INFORMATION
  Report Type: 
  Country: None (occurrence: None)
  Receive Date: 20120606
  Receipt Date: 20120605
  Transmission Date: 20120825
  Serious: Yes (Other)
  Sender: FDA-Public Use
  Company Number: US-PURDUE-USA-2012-0088044

PATIENT
  Sex: Male

DRUGS (1)
  1. BUTRANS [Suspect]
     Indication: PAIN
     Dosage: 20 MCG/HR, WEEKLY
     Route: 062
     Dates: start: 20111001, end: 20111101

REACTIONS (4)
  - OVERDOSE [None]
  - LOSS OF CONSCIOUSNESS [None]
  - DRUG LEVEL INCREASED [None]
  - WRONG TECHNIQUE IN DRUG USAGE PROCESS [None]
